FAERS Safety Report 4647362-8 (Version None)
Quarter: 2005Q2

REPORT INFORMATION
  Report Type: 
  Country: None (occurrence: None)
  Receive Date: 20050428
  Receipt Date: 20050425
  Transmission Date: 20051028
  Serious: Yes (Other)
  Sender: FDA-Public Use
  Company Number: PHNU2005DE01743

PATIENT
  Age: 16 Year
  Sex: Male

DRUGS (2)
  1. RITALIN-SR [Suspect]
     Route: 048
  2. RITALIN [Suspect]
     Route: 048

REACTIONS (1)
  - ASTROCYTOMA [None]
